FAERS Safety Report 19183667 (Version 1)
Quarter: 2021Q2

REPORT INFORMATION
  Report Type: Spontaneous
  Country: NL (occurrence: NL)
  Receive Date: 20210427
  Receipt Date: 20210427
  Transmission Date: 20210717
  Serious: Yes (Hospitalization, Other)
  Sender: FDA-Public Use
  Company Number: NL-TEVA-2021-NL-1904819

PATIENT
  Sex: Female

DRUGS (1)
  1. PREDNISOLON TABLET 30MG / BRAND NAME NOT SPECIFIED [Suspect]
     Active Substance: PREDNISOLONE
     Indication: ASTHMA
     Dosage: 30 MG (MILLIGRAM), THERAPY END DATE : ASKED BUT UNKNOWN
     Dates: start: 202102

REACTIONS (1)
  - Psychotic disorder [Recovering/Resolving]
